FAERS Safety Report 9131241 (Version 2)
Quarter: 2013Q1

REPORT INFORMATION
  Report Type: Spontaneous
  Country: GB (occurrence: GB)
  Receive Date: 20130301
  Receipt Date: 20130325
  Transmission Date: 20140127
  Serious: Yes (Other)
  Sender: FDA-Public Use
  Company Number: GB-UCBSA-079461

PATIENT
  Age: 42 Year
  Sex: Female

DRUGS (10)
  1. KEPPRA [Suspect]
     Indication: CEREBRAL THROMBOSIS
     Dosage: 3 TABLETS PER DAY
  2. DIAZEPAM [Interacting]
     Indication: DEPRESSION
  3. DIAZEPAM [Interacting]
     Indication: SLEEP DISORDER
  4. DIAZEPAM [Interacting]
     Indication: FEELING OF RELAXATION
  5. DIAZEPAM [Interacting]
     Indication: DEPRESSION
     Dates: start: 201207
  6. DIAZEPAM [Interacting]
     Indication: SLEEP DISORDER
     Dates: start: 201207
  7. DIAZEPAM [Interacting]
     Indication: FEELING OF RELAXATION
     Dates: start: 201207
  8. ACETYL SALICYLIC ACID [Suspect]
  9. LEVOTHYROXINE SODIUM [Suspect]
     Indication: HYPOTHYROIDISM
  10. SERTRALINE [Concomitant]

REACTIONS (14)
  - Palpitations [Unknown]
  - Suicidal ideation [Unknown]
  - Convulsion [Unknown]
  - Diarrhoea [Unknown]
  - Drug interaction [Unknown]
  - Malaise [Unknown]
  - Feeling abnormal [Unknown]
  - Insomnia [Unknown]
  - Abdominal pain upper [Unknown]
  - Hyperhidrosis [Unknown]
  - Abdominal discomfort [Unknown]
  - Hallucination, visual [Unknown]
  - Vomiting [Unknown]
  - Weight decreased [Unknown]
